FAERS Safety Report 15681895 (Version 1)
Quarter: 2018Q4

REPORT INFORMATION
  Report Type: Report from Study
  Country: FR (occurrence: FR)
  Receive Date: 20181203
  Receipt Date: 20181203
  Transmission Date: 20190205
  Serious: Yes (Death, Other)
  Sender: FDA-Public Use
  Company Number: FR-SEATTLE GENETICS-2017SGN01873

PATIENT
  Age: 70 Year
  Sex: Female
  Weight: 57 kg

DRUGS (5)
  1. BENDAMUSTINE [Concomitant]
     Active Substance: BENDAMUSTINE
     Indication: PRODUCT USED FOR UNKNOWN INDICATION
     Dosage: UNK
     Route: 065
  2. BRENTUXIMAB VEDOTIN-MPI [Suspect]
     Active Substance: BRENTUXIMAB VEDOTIN
     Indication: ANAPLASTIC LARGE-CELL LYMPHOMA
     Dosage: 105 MG, UNK
     Route: 042
     Dates: start: 20160713, end: 20161027
  3. BENDAMUSTINE [Concomitant]
     Active Substance: BENDAMUSTINE
     Dosage: UNK
     Route: 065
  4. RUXOLITINIB [Concomitant]
     Active Substance: RUXOLITINIB
     Dosage: 10 MG, BID
     Route: 048
     Dates: start: 20180403, end: 20180613
  5. AMPHOTERICIN B. [Concomitant]
     Active Substance: AMPHOTERICIN B
     Dosage: UNK
     Route: 065

REACTIONS (6)
  - T-cell lymphoma [Fatal]
  - Weight increased [Unknown]
  - Depression [Fatal]
  - Respiratory failure [Fatal]
  - Starvation [Fatal]
  - Off label use [Unknown]

NARRATIVE: CASE EVENT DATE: 20160804
